FAERS Safety Report 8554612-4 (Version None)
Quarter: 2012Q3

REPORT INFORMATION
  Report Type: 
  Country: None (occurrence: None)
  Receive Date: 20120725
  Receipt Date: 20120725
  Transmission Date: 20120928
  Serious: Yes (Hospitalization)
  Sender: FDA-Public Use
  Company Number: None

PATIENT
  Age: 87 Year
  Sex: Male
  Weight: 83.5 kg

DRUGS (1)
  1. ATENOLOL [Suspect]
     Dosage: 25 MG EVERY DAY PO
     Route: 048
     Dates: start: 20110429, end: 20120106

REACTIONS (2)
  - BRADYCARDIA [None]
  - DISEASE COMPLICATION [None]
